FAERS Safety Report 8416190-X (Version None)
Quarter: 2012Q2

REPORT INFORMATION
  Report Type: 
  Country: None (occurrence: None)
  Receive Date: 20120530
  Receipt Date: 20120518
  Transmission Date: 20120825
  Serious: Yes (Hospitalization)
  Sender: FDA-Public Use
  Company Number: 2012SP026957

PATIENT
  Age: 62 Year
  Sex: Female
  Weight: 46 kg

DRUGS (4)
  1. KETOPROFEN [Concomitant]
  2. PEG-INTRON [Suspect]
     Indication: HEPATITIS C
     Dosage: 1.5 MCG/KG;QW;SC
     Route: 058
     Dates: start: 20120229, end: 20120318
  3. REBETOL [Suspect]
     Indication: HEPATITIS C
     Dosage: 400 MG;QD;PO
     Route: 048
     Dates: start: 20120229, end: 20120318
  4. TELAVIC (ANTIVIRALS NOS) [Suspect]
     Indication: HEPATITIS C
     Dosage: 1500 MG;QD;PO
     Route: 048
     Dates: start: 20120302, end: 20120318

REACTIONS (8)
  - MELAENA [None]
  - NAUSEA [None]
  - GAIT DISTURBANCE [None]
  - LOSS OF CONSCIOUSNESS [None]
  - PYREXIA [None]
  - ABDOMINAL PAIN UPPER [None]
  - PRURITUS [None]
  - DRUG ERUPTION [None]
